FAERS Safety Report 24715098 (Version 2)
Quarter: 2025Q1

REPORT INFORMATION
  Report Type: Report from Study
  Country: US (occurrence: US)
  Receive Date: 20241210
  Receipt Date: 20250101
  Transmission Date: 20250409
  Serious: Yes (Hospitalization)
  Sender: ABBVIE
  Company Number: US-ABBVIE-6035899

PATIENT
  Age: 59 Year
  Sex: Female

DRUGS (1)
  1. HUMIRA [Suspect]
     Active Substance: ADALIMUMAB
     Indication: Psoriatic arthropathy
     Route: 058
     Dates: start: 20240226

REACTIONS (4)
  - Transient ischaemic attack [Recovering/Resolving]
  - Speech disorder [Unknown]
  - Stress [Unknown]
  - Movement disorder [Unknown]

NARRATIVE: CASE EVENT DATE: 20240101
